FAERS Safety Report 13389616 (Version 3)
Quarter: 2017Q2

REPORT INFORMATION
  Report Type: Spontaneous
  Country: US (occurrence: US)
  Receive Date: 20170330
  Receipt Date: 20170424
  Transmission Date: 20170830
  Serious: Yes (Other)
  Sender: FDA-Public Use
  Company Number: US-GILEAD-2017-0264169

PATIENT
  Age: 35 Year
  Sex: Male
  Weight: 78.46 kg

DRUGS (1)
  1. TRUVADA [Suspect]
     Active Substance: EMTRICITABINE\TENOFOVIR DISOPROXIL FUMARATE
     Indication: PROPHYLAXIS AGAINST HIV INFECTION
     Dosage: 1 DF, UNK
     Route: 048
     Dates: start: 20160901, end: 20170307

REACTIONS (4)
  - Prescription drug used without a prescription [Recovered/Resolved]
  - Drug ineffective [Unknown]
  - Acute HIV infection [Unknown]
  - Counterfeit drug administered [Recovered/Resolved]

NARRATIVE: CASE EVENT DATE: 20160901
